FAERS Safety Report 8480096-0 (Version None)
Quarter: 2012Q2

REPORT INFORMATION
  Report Type: 
  Country: None (occurrence: None)
  Receive Date: 20120629
  Receipt Date: 20120619
  Transmission Date: 20120825
  Serious: Yes (Other)
  Sender: FDA-Public Use
  Company Number: US-ELI_LILLY_AND_COMPANY-US201206006889

PATIENT
  Sex: Female

DRUGS (6)
  1. LORATADINE [Concomitant]
     Indication: HYPERSENSITIVITY
     Dosage: 10 MG, QD
  2. DOCUSATE [Concomitant]
     Indication: CONSTIPATION
     Dosage: 100 MG, PRN
  3. CYMBALTA [Suspect]
     Indication: BIPOLAR DISORDER
     Dosage: 60 MG, BID
  4. ONDANSETRON [Concomitant]
     Indication: ABDOMINAL DISCOMFORT
     Dosage: 8 MG, BID
  5. DEXAMETHASONE [Concomitant]
     Indication: ABDOMINAL DISCOMFORT
     Dosage: 8 MG, BID
  6. PROCHLORPERAZINE [Concomitant]
     Indication: NAUSEA
     Dosage: 10 MG, PRN

REACTIONS (2)
  - FIBROMYALGIA [None]
  - OFF LABEL USE [None]
